FAERS Safety Report 9308279 (Version 2)
Quarter: 2013Q2

REPORT INFORMATION
  Report Type: Spontaneous
  Country: DE (occurrence: DE)
  Receive Date: 20130524
  Receipt Date: 20130530
  Transmission Date: 20140414
  Serious: Yes (Hospitalization, Other)
  Sender: FDA-Public Use
  Company Number: DE-TEVA-404698GER

PATIENT
  Age: 0 Year
  Sex: Male
  Weight: 3.8 kg

DRUGS (4)
  1. CITALOPRAM [Suspect]
     Route: 064
  2. ATOSIL [Concomitant]
     Route: 064
  3. ORTHOMOL NATAL [Concomitant]
     Route: 064
  4. TAVOR [Concomitant]
     Route: 064

REACTIONS (5)
  - Hypertonia neonatal [Recovered/Resolved]
  - Agitation neonatal [Recovered/Resolved]
  - Neonatal hyponatraemia [Recovered/Resolved]
  - Temperature regulation disorder [Recovered/Resolved]
  - Neonatal respiratory distress syndrome [Recovered/Resolved]
